FAERS Safety Report 8947225 (Version 1)
Quarter: 2012Q4

REPORT INFORMATION
  Report Type: 
  Country: US (occurrence: US)
  Receive Date: 20121205
  Receipt Date: 20121205
  Transmission Date: 20130627
  Serious: No
  Sender: FDA-Public Use
  Company Number: US-TEVA-373971USA

PATIENT
  Sex: Female

DRUGS (1)
  1. QVAR [Suspect]
     Dosage: 1 Puff
     Route: 055
     Dates: start: 201211, end: 20121119

REACTIONS (2)
  - Chest discomfort [Unknown]
  - Drug ineffective [Unknown]
